FAERS Safety Report 20444718 (Version 1)
Quarter: 2022Q1

REPORT INFORMATION
  Report Type: Spontaneous
  Country: US (occurrence: None)
  Receive Date: 20220208
  Receipt Date: 20220208
  Transmission Date: 20220423
  Serious: Yes (Hospitalization, Disabling)
  Sender: FDA-Public Use
  Company Number: None

PATIENT
  Age: 75 Year
  Sex: Male

DRUGS (8)
  1. CAPECITABINE [Suspect]
     Active Substance: CAPECITABINE
     Indication: Colorectal cancer
     Route: 048
     Dates: start: 202109
  2. COLLAGEN [Concomitant]
  3. VITAMINS [Concomitant]
     Active Substance: VITAMINS
  4. METAMUCIL [Concomitant]
  5. VITAMINS A [Concomitant]
  6. B COMPLEX [Concomitant]
  7. C [Concomitant]
  8. D AND E [Concomitant]

REACTIONS (3)
  - Metastatic neoplasm [None]
  - Hyperbilirubinaemia [None]
  - Small intestinal obstruction [None]

NARRATIVE: CASE EVENT DATE: 20220201
